FAERS Safety Report 18587890 (Version 1)
Quarter: 2020Q4

REPORT INFORMATION
  Report Type: Report from Study
  Country: DE (occurrence: DE)
  Receive Date: 20201207
  Receipt Date: 20201207
  Transmission Date: 20210114
  Serious: Yes (Hospitalization)
  Sender: FDA-Public Use
  Company Number: DE-SHIRE-DE202017211

PATIENT
  Age: 72 Year
  Sex: Male
  Weight: 106 kg

DRUGS (21)
  1. TEDUGLUTIDE [Suspect]
     Active Substance: TEDUGLUTIDE
     Dosage: 5 MILLIGRAM (0.05 MG/KG DAILY DOSE, 7 TED DOSES PER WEEK)
     Route: 065
     Dates: start: 201608, end: 201609
  2. SULTAMICILLIN [Concomitant]
     Active Substance: SULTAMICILLIN
     Indication: ANTIBIOTIC THERAPY
     Dosage: 375 MILLIGRAM, BID
     Route: 048
     Dates: start: 20200709, end: 20200711
  3. SULTAMICILLIN [Concomitant]
     Active Substance: SULTAMICILLIN
     Dosage: 375 MILLIGRAM, BID
     Route: 048
     Dates: start: 20200710, end: 20200717
  4. TEDUGLUTIDE [Suspect]
     Active Substance: TEDUGLUTIDE
     Indication: SHORT-BOWEL SYNDROME
     Dosage: 2 MILLIGRAM (0.02 MG/KG DAILY DOSE, 7 TED DOSES PER WEEK)
     Route: 065
     Dates: start: 20160114, end: 20160522
  5. TEDUGLUTIDE [Suspect]
     Active Substance: TEDUGLUTIDE
     Dosage: 2 MILLIGRAM (0.02 MG/KG DAILY DOSE, 7 TED DOSES PER WEEK)
     Route: 065
     Dates: start: 201609
  6. FERINJECT [Concomitant]
     Active Substance: FERRIC CARBOXYMALTOSE
     Indication: PRODUCT USED FOR UNKNOWN INDICATION
  7. PREDNISONE. [Concomitant]
     Active Substance: PREDNISONE
     Indication: GOUT
  8. TEDUGLUTIDE [Suspect]
     Active Substance: TEDUGLUTIDE
     Dosage: 3.75 MILLIGRAM (0.04 MG/KG DAILY DOSE, 7 TED DOSES PER WEEK)
     Route: 065
     Dates: start: 20160526, end: 201608
  9. TEDUGLUTIDE [Suspect]
     Active Substance: TEDUGLUTIDE
     Dosage: 5 MILLIGRAM (0.05 MG/KG DAILY DOSE, 7 TED DOSES PER WEEK)
     Route: 065
     Dates: start: 201608, end: 201609
  10. TEDUGLUTIDE [Suspect]
     Active Substance: TEDUGLUTIDE
     Dosage: 2 MILLIGRAM (0.02 MG/KG DAILY DOSE, 7 TED DOSES PER WEEK)
     Route: 065
     Dates: start: 201609
  11. TEDUGLUTIDE [Suspect]
     Active Substance: TEDUGLUTIDE
     Dosage: 2 MILLIGRAM (0.02 MG/KG DAILY DOSE, 7 TED DOSES PER WEEK)
     Route: 065
     Dates: start: 201609
  12. TEDUGLUTIDE [Suspect]
     Active Substance: TEDUGLUTIDE
     Indication: SHORT-BOWEL SYNDROME
     Dosage: 2 MILLIGRAM (0.02 MG/KG DAILY DOSE, 7 TED DOSES PER WEEK)
     Route: 065
     Dates: start: 20160114, end: 20160522
  13. TEDUGLUTIDE [Suspect]
     Active Substance: TEDUGLUTIDE
     Dosage: 3.75 MILLIGRAM (0.04 MG/KG DAILY DOSE, 7 TED DOSES PER WEEK)
     Route: 065
     Dates: start: 20160526, end: 201608
  14. TEDUGLUTIDE [Suspect]
     Active Substance: TEDUGLUTIDE
     Indication: SHORT-BOWEL SYNDROME
     Dosage: 2 MILLIGRAM (0.02 MG/KG DAILY DOSE, 7 TED DOSES PER WEEK)
     Route: 065
     Dates: start: 20160114, end: 20160522
  15. TEDUGLUTIDE [Suspect]
     Active Substance: TEDUGLUTIDE
     Dosage: 3.75 MILLIGRAM (0.04 MG/KG DAILY DOSE, 7 TED DOSES PER WEEK)
     Route: 065
     Dates: start: 20160526, end: 201608
  16. TEDUGLUTIDE [Suspect]
     Active Substance: TEDUGLUTIDE
     Dosage: 5 MILLIGRAM (0.05 MG/KG DAILY DOSE, 7 TED DOSES PER WEEK)
     Route: 065
     Dates: start: 201608, end: 201609
  17. TEDUGLUTIDE [Suspect]
     Active Substance: TEDUGLUTIDE
     Dosage: 5 MILLIGRAM (0.05 MG/KG DAILY DOSE, 7 TED DOSES PER WEEK)
     Route: 065
     Dates: start: 201608, end: 201609
  18. TEDUGLUTIDE [Suspect]
     Active Substance: TEDUGLUTIDE
     Dosage: 2 MILLIGRAM (0.02 MG/KG DAILY DOSE, 7 TED DOSES PER WEEK)
     Route: 065
     Dates: start: 201609
  19. TEDUGLUTIDE [Suspect]
     Active Substance: TEDUGLUTIDE
     Indication: SHORT-BOWEL SYNDROME
     Dosage: 2 MILLIGRAM (0.02 MG/KG DAILY DOSE, 7 TED DOSES PER WEEK)
     Route: 065
     Dates: start: 20160114, end: 20160522
  20. TEDUGLUTIDE [Suspect]
     Active Substance: TEDUGLUTIDE
     Dosage: 3.75 MILLIGRAM (0.04 MG/KG DAILY DOSE, 7 TED DOSES PER WEEK)
     Route: 065
     Dates: start: 20160526, end: 201608
  21. NATRIUM [Concomitant]
     Indication: PRODUCT USED FOR UNKNOWN INDICATION

REACTIONS (3)
  - Nocturia [Not Recovered/Not Resolved]
  - Gout [Recovered/Resolved with Sequelae]
  - Nephrolithiasis [Recovered/Resolved]

NARRATIVE: CASE EVENT DATE: 20200501
